FAERS Safety Report 16908160 (Version 2)
Quarter: 2019Q4

REPORT INFORMATION
  Report Type: Spontaneous
  Country: US (occurrence: US)
  Receive Date: 20191011
  Receipt Date: 20191021
  Transmission Date: 20200122
  Serious: Yes (Other)
  Sender: FDA-Public Use
  Company Number: US-PFIZER INC-2019439147

PATIENT
  Age: 55 Year
  Sex: Male

DRUGS (3)
  1. VANCERIL [Concomitant]
     Active Substance: BECLOMETHASONE DIPROPIONATE
     Indication: BRONCHITIS
     Dosage: UNK (INHALER)
  2. THEOBID [Concomitant]
     Active Substance: THEOPHYLLINE ANHYDROUS
     Indication: BRONCHITIS
     Dosage: 300 MG, 2X/DAY (FOR A NUMBER OF MONTHS)
  3. BACTRIM DS [Suspect]
     Active Substance: SULFAMETHOXAZOLE\TRIMETHOPRIM
     Indication: BRONCHITIS
     Dosage: UNK (160 MG OF TRIMETHOPRIM AND 800 MG OF SULFAMETHOXAZOLE)

REACTIONS (1)
  - Cholestasis [Recovered/Resolved]
